FAERS Safety Report 6184274-5 (Version None)
Quarter: 2009Q2

REPORT INFORMATION
  Report Type: 
  Country: None (occurrence: None)
  Receive Date: 20090508
  Receipt Date: 20090504
  Transmission Date: 20091009
  Serious: Yes (Death, Hospitalization)
  Sender: FDA-Public Use
  Company Number: CN-ELI_LILLY_AND_COMPANY-CN200905000507

PATIENT
  Age: 60 Year
  Sex: Male

DRUGS (3)
  1. CECLOR [Suspect]
     Indication: ARTHRALGIA
     Dosage: UNK, UNKNOWN
     Route: 048
  2. DICLOFENAC [Concomitant]
     Dosage: UNK, UNKNOWN
     Route: 048
  3. VITAMIN B6 [Concomitant]
     Dosage: UNK, UNKNOWN
     Route: 048

REACTIONS (3)
  - HAEMOLYSIS [None]
  - RENAL IMPAIRMENT [None]
  - SEPTIC SHOCK [None]
